FAERS Safety Report 23269589 (Version 2)
Quarter: 2024Q1

REPORT INFORMATION
  Report Type: Spontaneous
  Country: DE (occurrence: DE)
  Receive Date: 20231207
  Receipt Date: 20240107
  Transmission Date: 20240410
  Serious: Yes (Other)
  Sender: FDA-Public Use
  Company Number: DE-EXELIXIS-XL18423061325

PATIENT
  Age: 82 Year
  Sex: Female
  Weight: 89 kg

DRUGS (5)
  1. NIVOLUMAB [Suspect]
     Active Substance: NIVOLUMAB
     Indication: Renal cell carcinoma
     Dosage: 240 MG
     Dates: start: 20230202
  2. CABOZANTINIB [Suspect]
     Active Substance: CABOZANTINIB
     Indication: Renal cell carcinoma
     Dosage: 40 MG, QD
     Dates: start: 20230206, end: 20230525
  3. CABOZANTINIB [Suspect]
     Active Substance: CABOZANTINIB
     Dosage: 20 MG, QD
     Dates: start: 20230526, end: 20230930
  4. CANDESARTAN [Concomitant]
     Active Substance: CANDESARTAN
     Indication: Product used for unknown indication
     Route: 048
     Dates: start: 20230302
  5. METHIMAZOLE [Concomitant]
     Active Substance: METHIMAZOLE
     Indication: Product used for unknown indication
     Route: 048
     Dates: start: 20231113

REACTIONS (9)
  - Taste disorder [Recovering/Resolving]
  - Hypertension [Recovered/Resolved]
  - Fatigue [Unknown]
  - Abdominal pain upper [Unknown]
  - Hypothyroidism [Recovered/Resolved]
  - Diarrhoea [Unknown]
  - Fat necrosis [Unknown]
  - Abscess [Unknown]
  - Hyperthyroidism [Unknown]

NARRATIVE: CASE EVENT DATE: 20230302
